FAERS Safety Report 7270429-5 (Version None)
Quarter: 2011Q1

REPORT INFORMATION
  Report Type: 
  Country: None (occurrence: None)
  Receive Date: 20110202
  Receipt Date: 20110124
  Transmission Date: 20110831
  Serious: Yes (Other)
  Sender: FDA-Public Use
  Company Number: JP-BRISTOL-MYERS SQUIBB COMPANY-15516164

PATIENT
  Sex: Male

DRUGS (3)
  1. COSMEGEN [Suspect]
     Indication: TESTICULAR GERM CELL CANCER
     Dosage: 1 DF= .5MG/BODY/DAY ON DAY 1-5
  2. VEPESID [Suspect]
     Indication: TESTICULAR GERM CELL CANCER
     Dosage: 1 DF= 100MG/DAY DAILY ON DAYS 1-5
  3. METHOTREXATE [Suspect]
     Indication: TESTICULAR GERM CELL CANCER
     Dosage: 1 DF= 450 MG/BODY/DAY DAY 1

REACTIONS (1)
  - RENAL IMPAIRMENT [None]
